FAERS Safety Report 11674180 (Version 1)
Quarter: 2015Q4

REPORT INFORMATION
  Report Type: Spontaneous
  Country: FR (occurrence: FR)
  Receive Date: 20151028
  Receipt Date: 20151028
  Transmission Date: 20160304
  Serious: Yes (Hospitalization)
  Sender: FDA-Public Use
  Company Number: FR-TEVA-602699ISR

PATIENT
  Age: 3 Year
  Sex: Male
  Weight: 12 kg

DRUGS (5)
  1. ENDOXAN [Suspect]
     Active Substance: CYCLOPHOSPHAMIDE
     Indication: CLEAR CELL SARCOMA OF THE KIDNEY
     Dosage: SIOP 2001 NEPHROBLASTOMA PROTOCOL
     Dates: start: 20150326, end: 20150328
  2. PLITICAN [Concomitant]
     Active Substance: ALIZAPRIDE HYDROCHLORIDE
     Route: 065
     Dates: start: 20150326, end: 20150329
  3. ZOPHREN [Concomitant]
     Active Substance: ONDANSETRON
     Route: 048
     Dates: start: 20150326, end: 20150329
  4. DOXORUBICINE TEVA [Suspect]
     Active Substance: DOXORUBICIN
     Indication: CLEAR CELL SARCOMA OF THE KIDNEY
     Dosage: SIOP 2001 NEPHROBLASTOMA PROTOCOL
     Route: 065
     Dates: start: 20150326, end: 20150326
  5. MESNA EG 100 MG/ML [Concomitant]
     Dates: start: 20150326, end: 20150329

REACTIONS (1)
  - Febrile bone marrow aplasia [Recovered/Resolved]

NARRATIVE: CASE EVENT DATE: 20150407
